FAERS Safety Report 9780872 (Version 1)
Quarter: 2013Q4

REPORT INFORMATION
  Report Type: Spontaneous
  Country: AU (occurrence: AU)
  Receive Date: 20131224
  Receipt Date: 20131224
  Transmission Date: 20140711
  Serious: Yes (Other)
  Sender: FDA-Public Use
  Company Number: PHHY2013AU149665

PATIENT
  Age: 76 Year
  Sex: Male

DRUGS (13)
  1. ACLASTA [Suspect]
     Dosage: UNK UKN, UNK
     Route: 042
  2. ATACAND PLUS [Concomitant]
     Dosage: 32 /12.5MG
  3. COPLAVIX [Concomitant]
     Dosage: UNK UKN, UNK
  4. FISH OIL [Concomitant]
     Dosage: UNK UKN, UNK
  5. GLYCERYL TRINITRATE [Concomitant]
     Dosage: UNK UKN, UNK
  6. IVABRADINE [Concomitant]
     Dosage: UNK UKN, UNK
  7. METFORMIN HYDROCHLORIDE [Concomitant]
     Dosage: UNK UKN, UNK
  8. PRAZOSIN HYDROCHLORIDE [Concomitant]
     Dosage: UNK UKN, UNK
  9. ROSUVASTATIN [Concomitant]
     Dosage: UNK UKN, UNK
  10. THYROXINE SODIUM [Concomitant]
     Dosage: UNK UKN, UNK
  11. TRAMADOL HYDROCHLORIDE [Concomitant]
     Dosage: UNK UKN, UNK
  12. PANADOL OSTEO [Concomitant]
     Dosage: UNK UKN, UNK
  13. VITAMIN B12 NOS [Concomitant]
     Dosage: UNK UKN, UNK

REACTIONS (4)
  - Cardiac failure chronic [Unknown]
  - Myocardial ischaemia [Unknown]
  - Troponin increased [Unknown]
  - Renal failure acute [Unknown]
